FAERS Safety Report 5535748-9 (Version None)
Quarter: 2007Q4

REPORT INFORMATION
  Report Type: 
  Country: None (occurrence: None)
  Receive Date: 20071206
  Receipt Date: 20070402
  Transmission Date: 20080405
  Serious: Yes (Hospitalization, Other)
  Sender: FDA-Public Use
  Company Number: US-AMGEN-KDL212228

PATIENT
  Sex: Female
  Weight: 84 kg

DRUGS (16)
  1. ENBREL [Suspect]
     Indication: RHEUMATOID ARTHRITIS
     Route: 058
     Dates: start: 20030710
  2. ENBREL [Suspect]
     Indication: PSORIASIS
  3. METHOTREXATE [Concomitant]
     Dates: end: 20031201
  4. NAPROSYN [Concomitant]
     Route: 048
  5. VICODIN [Concomitant]
  6. PREVACID [Concomitant]
  7. MINOCYCLINE HCL [Concomitant]
     Dates: start: 20040406
  8. WELLBUTRIN [Concomitant]
     Dates: start: 20040801
  9. XANAX [Concomitant]
  10. ZYRTEC [Concomitant]
  11. NORTRIPTYLINE HCL [Concomitant]
  12. ACTOS [Concomitant]
  13. NEURONTIN [Concomitant]
  14. FOLIC ACID [Concomitant]
  15. METFORMIN HCL [Concomitant]
  16. ESTROGEN NOS [Concomitant]
     Route: 062

REACTIONS (6)
  - INTERSTITIAL LUNG DISEASE [None]
  - PSORIATIC ARTHROPATHY [None]
  - RHEUMATOID ARTHRITIS [None]
  - TEMPOROMANDIBULAR JOINT SYNDROME [None]
  - URINARY TRACT DISORDER [None]
  - VULVAL CANCER [None]
